FAERS Safety Report 4444489-0 (Version None)
Quarter: 2004Q3

REPORT INFORMATION
  Report Type: 
  Country: None (occurrence: None)
  Receive Date: 20040909
  Receipt Date: 20040902
  Transmission Date: 20050211
  Serious: Yes (Other)
  Sender: FDA-Public Use
  Company Number: CZ-JNJFOC-20040900965

PATIENT
  Sex: Female

DRUGS (5)
  1. REMICADE [Suspect]
     Indication: RHEUMATOID ARTHRITIS
     Dosage: 5 INFUSIONS
     Route: 042
  2. METHOTREXATE [Concomitant]
     Indication: RHEUMATOID ARTHRITIS
     Route: 049
  3. PREDNISONE [Concomitant]
     Route: 049
  4. MOVALIS [Concomitant]
     Route: 049
  5. ACIDUM FOLICUM [Concomitant]
     Route: 049

REACTIONS (4)
  - DYSPNOEA [None]
  - FLUSHING [None]
  - PALPITATIONS [None]
  - TREMOR [None]
